FAERS Safety Report 10163815 (Version 2)
Quarter: 2014Q3

REPORT INFORMATION
  Report Type: Report from Study
  Country: DE (occurrence: NL)
  Receive Date: 20140509
  Receipt Date: 20140715
  Transmission Date: 20150326
  Serious: Yes (Death, Hospitalization, Other)
  Sender: FDA-Public Use
  Company Number: DE-ACTELION-A-US2010-98288

PATIENT
  Age: 64 Year
  Sex: Female

DRUGS (1)
  1. VENTAVIS [Suspect]
     Active Substance: ILOPROST
     Indication: PRODUCT USED FOR UNKNOWN INDICATION
     Dosage: SIX TIMES DAILY
     Route: 055

REACTIONS (7)
  - Pulmonary arterial hypertension [Fatal]
  - Cardiac failure [Unknown]
  - Weight decreased [Unknown]
  - Cyanosis [Unknown]
  - General physical health deterioration [Unknown]
  - Wound [Unknown]
  - Hypoxia [Unknown]
